FAERS Safety Report 12569145 (Version 2)
Quarter: 2016Q3

REPORT INFORMATION
  Report Type: Spontaneous
  Country: IT (occurrence: IT)
  Receive Date: 20160719
  Receipt Date: 20160803
  Transmission Date: 20161109
  Serious: Yes (Death)
  Sender: FDA-Public Use
  Company Number: IT-CIPLA LTD.-2016IT09600

PATIENT

DRUGS (3)
  1. RANITIDINE. [Suspect]
     Active Substance: RANITIDINE
     Indication: PROPHYLAXIS
     Dosage: 600 MG, QD, DAILY
     Route: 048
     Dates: end: 20160503
  2. CETIRIZINE HYDROCHLORIDE. [Suspect]
     Active Substance: CETIRIZINE HYDROCHLORIDE
     Indication: PROPHYLAXIS
     Dosage: UNK
     Route: 048
     Dates: end: 20100503
  3. ULTRAVIST [Suspect]
     Active Substance: IOPROMIDE
     Dosage: 66 ML TOTAL
     Route: 042
     Dates: end: 20100503

REACTIONS (7)
  - Acute respiratory failure [Fatal]
  - Malaise [Fatal]
  - Abdominal pain [Fatal]
  - Anaphylactic shock [Fatal]
  - Atrioventricular block [Fatal]
  - Cardiac arrest [Fatal]
  - Cardiac fibrillation [Fatal]

NARRATIVE: CASE EVENT DATE: 20100503
